FAERS Safety Report 8158832-2 (Version None)
Quarter: 2012Q1

REPORT INFORMATION
  Report Type: 
  Country: None (occurrence: None)
  Receive Date: 20120223
  Receipt Date: 20110929
  Transmission Date: 20120608
  Serious: Yes (Other)
  Sender: FDA-Public Use
  Company Number: US-ASTELLAS-2012US002016

PATIENT

DRUGS (4)
  1. PACLITAXEL [Suspect]
     Indication: OVARIAN CANCER
     Dosage: 175 MG/M2, Q3W
     Route: 065
  2. ERLOTINIB HYDROCHLORIDE [Suspect]
     Indication: OVARIAN CANCER
     Dosage: 150 MG, UID/QD
     Route: 048
  3. CARBOPLATIN [Suspect]
     Indication: OVARIAN CANCER
     Dosage: UNK
     Route: 065
  4. BEVACIZUMAB [Suspect]
     Indication: OVARIAN CANCER
     Dosage: 15 MG/KG, Q3W
     Route: 065

REACTIONS (2)
  - LEUKOPENIA [None]
  - OFF LABEL USE [None]
